FAERS Safety Report 19150148 (Version 3)
Quarter: 2021Q3

REPORT INFORMATION
  Report Type: Spontaneous
  Country: US (occurrence: US)
  Receive Date: 20210417
  Receipt Date: 20210823
  Transmission Date: 20211014
  Serious: Yes (Other)
  Sender: FDA-Public Use
  Company Number: NVSC2021US080941

PATIENT
  Age: 58 Year
  Sex: Female

DRUGS (1)
  1. COSENTYX [Suspect]
     Active Substance: SECUKINUMAB
     Indication: PRODUCT USED FOR UNKNOWN INDICATION
     Dosage: 300 MG, QMO
     Route: 058
     Dates: start: 20210322

REACTIONS (3)
  - Scleritis [Unknown]
  - Drug ineffective [Unknown]
  - Uveitis [Unknown]

NARRATIVE: CASE EVENT DATE: 20210322
